FAERS Safety Report 4964961-4 (Version None)
Quarter: 2006Q2

REPORT INFORMATION
  Report Type: 
  Country: None (occurrence: None)
  Receive Date: 20060403
  Receipt Date: 20060324
  Transmission Date: 20061013
  Serious: No
  Sender: FDA-Public Use
  Company Number: TAP2006Q00600

PATIENT
  Age: 12 Year
  Sex: Female
  Weight: 49.9 kg

DRUGS (2)
  1. PREVACID [Suspect]
     Indication: STOMACH DISCOMFORT
     Dosage: 30 MG, 1 IN 1 D, PER ORAL
     Route: 048
     Dates: start: 20060303, end: 20060309
  2. FERROUS SULFATE TAB [Concomitant]

REACTIONS (5)
  - DIZZINESS [None]
  - DYSGRAPHIA [None]
  - MIGRAINE [None]
  - TREMOR [None]
  - VISION BLURRED [None]
